FAERS Safety Report 8154524-4 (Version None)
Quarter: 2012Q1

REPORT INFORMATION
  Report Type: 
  Country: None (occurrence: None)
  Receive Date: 20120215
  Receipt Date: 20120209
  Transmission Date: 20120608
  Serious: Yes (Hospitalization)
  Sender: FDA-Public Use
  Company Number: 2011SP057423

PATIENT
  Age: 57 Year
  Sex: Female
  Weight: 70.4 kg

DRUGS (54)
  1. REBETOL [Suspect]
     Indication: HEPATITIS C
     Dosage: 2;3 DF, QAM, PO
     Route: 048
     Dates: start: 20111123, end: 20111128
  2. REBETOL [Suspect]
     Indication: HEPATITIS C
     Dosage: 2;3 DF, QAM, PO
     Route: 048
     Dates: start: 20111124, end: 20111128
  3. REBETOL [Suspect]
     Indication: HEPATITIS C
     Dosage: 2;3 DF, QAM, PO
     Route: 048
     Dates: start: 20111006, end: 20111006
  4. REBETOL [Suspect]
     Indication: HEPATITIS C
     Dosage: 2;3 DF, QAM, PO
     Route: 048
     Dates: start: 20111007, end: 20111116
  5. REBETOL [Suspect]
     Indication: HEPATITIS C
     Dosage: 2;3 DF, QAM, PO
     Route: 048
     Dates: start: 20111215, end: 20111219
  6. REBETOL [Suspect]
     Indication: HEPATITIS C
     Dosage: 2;3 DF, QAM, PO
     Route: 048
     Dates: start: 20110920, end: 20111019
  7. REBETOL [Suspect]
     Indication: HEPATITIS C
     Dosage: 2;3 DF, QAM, PO
     Route: 048
     Dates: start: 20111117, end: 20111122
  8. REBETOL [Suspect]
     Indication: HEPATITIS C
     Dosage: 2;3 DF, QAM, PO
     Route: 048
     Dates: start: 20111220, end: 20120103
  9. REBETOL [Suspect]
     Indication: HEPATITIS C
     Dosage: 2;3 DF, QAM, PO
     Route: 048
     Dates: start: 20110921, end: 20111005
  10. REBETOL [Suspect]
     Indication: HEPATITIS C
     Dosage: 2;3 DF, QAM, PO
     Route: 048
     Dates: start: 20111215, end: 20120111
  11. REBETOL [Suspect]
     Indication: HEPATITIS C
     Dosage: 2;3 DF, QAM, PO
     Route: 048
     Dates: start: 20120104, end: 20120110
  12. REBETOL [Suspect]
     Indication: HEPATITIS C
     Dosage: 2;3 DF, QAM, PO
     Route: 048
     Dates: start: 20111020, end: 20111116
  13. REBETOL [Suspect]
     Indication: HEPATITIS C
     Dosage: 2;3 DF, QAM, PO
     Route: 048
     Dates: start: 20111117, end: 20111123
  14. REBETOL [Suspect]
     Indication: HEPATITIS C
     Dosage: 2;3 DF, QAM, PO
     Route: 048
     Dates: start: 20111129, end: 20111214
  15. DEPLIN [Concomitant]
  16. LYSINE [Concomitant]
  17. EFFEXOR [Concomitant]
  18. PLACEBO [Suspect]
     Indication: HEPATITIS C
     Dosage: 12 DF, TID, PO
     Route: 048
     Dates: start: 20111117, end: 20111123
  19. PLACEBO [Suspect]
     Indication: HEPATITIS C
     Dosage: 12 DF, TID, PO
     Route: 048
     Dates: start: 20111020, end: 20111116
  20. IBUPROFEN [Concomitant]
  21. EFFEXOR [Concomitant]
  22. LORATADINE [Concomitant]
  23. WELLBUTRIN [Concomitant]
  24. VITAMIN B COMPLEX CAP [Concomitant]
  25. BLINDED MK-5172 [Suspect]
     Indication: HEPATITIS C
     Dosage: 8; 3 DF
     Dates: start: 20111007, end: 20111019
  26. BLINDED MK-5172 [Suspect]
     Indication: HEPATITIS C
     Dosage: 8; 3 DF
     Dates: start: 20111020, end: 20111116
  27. BLINDED MK-5172 [Suspect]
     Indication: HEPATITIS C
     Dosage: 8; 3 DF
     Dates: start: 20111117, end: 20111123
  28. BLINDED MK-5172 [Suspect]
     Indication: HEPATITIS C
     Dosage: 8; 3 DF
     Dates: start: 20110921, end: 20111019
  29. BLINDED MK-5172 [Suspect]
     Indication: HEPATITIS C
     Dosage: 8; 3 DF
     Dates: start: 20110921, end: 20110921
  30. BLINDED MK-5172 [Suspect]
     Indication: HEPATITIS C
     Dosage: 8; 3 DF
     Dates: start: 20110920, end: 20110920
  31. BLINDED MK-5172 [Suspect]
     Indication: HEPATITIS C
     Dosage: 8; 3 DF
     Dates: start: 20111006, end: 20111006
  32. VALTREX [Concomitant]
  33. WELLBUTRIN [Concomitant]
  34. OMEPRAZOLE [Concomitant]
  35. ZOFRAN [Concomitant]
  36. PEG-INTRON [Suspect]
     Indication: HEPATITIS C
     Dosage: 0.4 ML, QW, SC
     Route: 058
     Dates: start: 20111114, end: 20111114
  37. PEG-INTRON [Suspect]
     Indication: HEPATITIS C
     Dosage: 0.4 ML, QW, SC
     Route: 058
     Dates: start: 20111121, end: 20111121
  38. PEG-INTRON [Suspect]
     Indication: HEPATITIS C
     Dosage: 0.4 ML, QW, SC
     Route: 058
     Dates: start: 20111129, end: 20111129
  39. PEG-INTRON [Suspect]
     Indication: HEPATITIS C
     Dosage: 0.4 ML, QW, SC
     Route: 058
     Dates: start: 20120102, end: 20120102
  40. PEG-INTRON [Suspect]
     Indication: HEPATITIS C
     Dosage: 0.4 ML, QW, SC
     Route: 058
     Dates: start: 20110920, end: 20110920
  41. PEG-INTRON [Suspect]
     Indication: HEPATITIS C
     Dosage: 0.4 ML, QW, SC
     Route: 058
     Dates: start: 20111212, end: 20111212
  42. PEG-INTRON [Suspect]
     Indication: HEPATITIS C
     Dosage: 0.4 ML, QW, SC
     Route: 058
     Dates: start: 20111107, end: 20111107
  43. PEG-INTRON [Suspect]
     Indication: HEPATITIS C
     Dosage: 0.4 ML, QW, SC
     Route: 058
     Dates: start: 20111031, end: 20111031
  44. PEG-INTRON [Suspect]
     Indication: HEPATITIS C
     Dosage: 0.4 ML, QW, SC
     Route: 058
     Dates: start: 20111010, end: 20111010
  45. PEG-INTRON [Suspect]
     Indication: HEPATITIS C
     Dosage: 0.4 ML, QW, SC
     Route: 058
     Dates: start: 20111205, end: 20111205
  46. PEG-INTRON [Suspect]
     Indication: HEPATITIS C
     Dosage: 0.4 ML, QW, SC
     Route: 058
     Dates: start: 20120108, end: 20120108
  47. PEG-INTRON [Suspect]
     Indication: HEPATITIS C
     Dosage: 0.4 ML, QW, SC
     Route: 058
     Dates: start: 20110926, end: 20110926
  48. PEG-INTRON [Suspect]
     Indication: HEPATITIS C
     Dosage: 0.4 ML, QW, SC
     Route: 058
     Dates: start: 20111003, end: 20111003
  49. PEG-INTRON [Suspect]
     Indication: HEPATITIS C
     Dosage: 0.4 ML, QW, SC
     Route: 058
     Dates: start: 20111017, end: 20111017
  50. PEG-INTRON [Suspect]
     Indication: HEPATITIS C
     Dosage: 0.4 ML, QW, SC
     Route: 058
     Dates: start: 20111219, end: 20111219
  51. PEG-INTRON [Suspect]
     Indication: HEPATITIS C
     Dosage: 0.4 ML, QW, SC
     Route: 058
     Dates: start: 20111024, end: 20111024
  52. PEG-INTRON [Suspect]
     Indication: HEPATITIS C
     Dosage: 0.4 ML, QW, SC
     Route: 058
     Dates: start: 20111226, end: 20111226
  53. WELLBUTRIN [Concomitant]
  54. IBUPROFEN [Concomitant]

REACTIONS (6)
  - DEHYDRATION [None]
  - TREMOR [None]
  - WALKING AID USER [None]
  - NAUSEA [None]
  - ASTHENIA [None]
  - VOMITING [None]
